FAERS Safety Report 20364435 (Version 1)
Quarter: 2022Q1

REPORT INFORMATION
  Report Type: Spontaneous
  Country: JP (occurrence: JP)
  Receive Date: 20220121
  Receipt Date: 20220121
  Transmission Date: 20220423
  Serious: Yes (Hospitalization)
  Sender: FDA-Public Use
  Company Number: JP-Eisai-202110823_LEN_P_1

PATIENT
  Age: 70 Year
  Sex: Male
  Weight: 45 kg

DRUGS (6)
  1. LENVIMA [Suspect]
     Active Substance: LENVATINIB
     Indication: Follicular thyroid cancer
     Route: 048
     Dates: start: 20210319, end: 20210401
  2. LENVIMA [Suspect]
     Active Substance: LENVATINIB
     Route: 048
     Dates: start: 20210426, end: 20210503
  3. LENVIMA [Suspect]
     Active Substance: LENVATINIB
     Route: 048
     Dates: start: 20210506, end: 20210511
  4. LENVIMA [Suspect]
     Active Substance: LENVATINIB
     Route: 048
     Dates: start: 20210512, end: 20210513
  5. LENVIMA [Suspect]
     Active Substance: LENVATINIB
     Dosage: DOSE AND FREQUENCY NOT PROVIDED
     Route: 048
     Dates: start: 2021, end: 20210607
  6. NEXAVAR [Suspect]
     Active Substance: SORAFENIB
     Indication: Follicular thyroid cancer
     Route: 048
     Dates: start: 20210608, end: 20210613

REACTIONS (1)
  - Fistula [Recovering/Resolving]

NARRATIVE: CASE EVENT DATE: 20210324
